FAERS Safety Report 4381817-9 (Version None)
Quarter: 2004Q2

REPORT INFORMATION
  Report Type: 
  Country: None (occurrence: None)
  Receive Date: 20040603
  Receipt Date: 20030627
  Transmission Date: 20050107
  Serious: Yes (Hospitalization)
  Sender: FDA-Public Use
  Company Number: 200315997US

PATIENT
  Age: 52 Year
  Sex: Female
  Weight: 63 kg

DRUGS (6)
  1. LOVENOX [Suspect]
     Dosage: 50 MG QD SC
     Route: 058
     Dates: start: 20030621
  2. ELOXATIN [Suspect]
     Indication: METASTATIC NEOPLASM
     Dosage: 140 (X 1 DOSE) MG
     Dates: start: 20030620
  3. FLUOROURACIL [Suspect]
     Indication: METASTATIC NEOPLASM
     Dosage: 650 (X 1 DOSE) MG
     Dates: start: 20030620
  4. DIPHENHYDRAMINE HCL [Concomitant]
  5. TYLENOL [Concomitant]
  6. METHYLPREDNISOLONE SODIUM SUCCINATE (SOLU-MEDROL) [Concomitant]

REACTIONS (1)
  - THROMBOCYTOPENIA [None]
